FAERS Safety Report 6400078-X (Version None)
Quarter: 2009Q4

REPORT INFORMATION
  Report Type: 
  Country: None (occurrence: None)
  Receive Date: 20091014
  Receipt Date: 20090724
  Transmission Date: 20100525
  Serious: Yes (Other)
  Sender: FDA-Public Use
  Company Number: B0461220A

PATIENT
  Sex: Male
  Weight: 73 kg

DRUGS (3)
  1. DEROXAT [Suspect]
     Indication: DEPRESSION
     Dosage: 20MG PER DAY
     Route: 048
     Dates: start: 19900101
  2. BLOOD PRESSURE MEDICATION [Concomitant]
     Route: 065
  3. PROSTATE MEDICATION [Concomitant]
     Route: 065

REACTIONS (3)
  - AMNESIA [None]
  - DRUG DEPENDENCE [None]
  - ERECTILE DYSFUNCTION [None]
